FAERS Safety Report 6935551-9 (Version None)
Quarter: 2010Q3

REPORT INFORMATION
  Report Type: 
  Country: None (occurrence: None)
  Receive Date: 20100823
  Receipt Date: 20100811
  Transmission Date: 20110219
  Serious: No
  Sender: FDA-Public Use
  Company Number: 2008BI027785

PATIENT
  Sex: Female

DRUGS (2)
  1. TYSABRI [Suspect]
     Indication: MULTIPLE SCLEROSIS
     Route: 042
     Dates: start: 20080730, end: 20100527
  2. COPAXONE [Concomitant]
     Indication: MULTIPLE SCLEROSIS
     Dates: start: 20010301

REACTIONS (17)
  - BURNING SENSATION MUCOSAL [None]
  - CARTILAGE INJURY [None]
  - DYSGEUSIA [None]
  - DYSPEPSIA [None]
  - FATIGUE [None]
  - GASTROOESOPHAGEAL REFLUX DISEASE [None]
  - GLOSSODYNIA [None]
  - NASOPHARYNGITIS [None]
  - NAUSEA [None]
  - PHARYNGOTONSILLITIS [None]
  - PYREXIA [None]
  - SINUS DISORDER [None]
  - STOMATITIS [None]
  - TONGUE DISCOLOURATION [None]
  - TONSILLITIS [None]
  - TOOTH DISCOLOURATION [None]
  - TOOTH FRACTURE [None]
